FAERS Safety Report 7621507-X (Version None)
Quarter: 2011Q3

REPORT INFORMATION
  Report Type: 
  Country: None (occurrence: None)
  Receive Date: 20110719
  Receipt Date: 20110713
  Transmission Date: 20111222
  Serious: Yes (Other)
  Sender: FDA-Public Use
  Company Number: CA-PFIZER INC-2011127360

PATIENT
  Age: 43 Year
  Sex: Female
  Weight: 86.168 kg

DRUGS (5)
  1. ROBAX PLATINUM [Suspect]
     Indication: BACK PAIN
     Dosage: 2 TABLETS AT ONCE
     Route: 065
     Dates: start: 20110603, end: 20110603
  2. DIANE-35 [Concomitant]
     Indication: CONTRACEPTION
     Dosage: UNK
  3. IBUPROFEN (ADVIL) [Suspect]
     Dosage: UNK
     Route: 065
     Dates: start: 20110603
  4. SYMBICORT [Concomitant]
     Indication: ASTHMA
     Dosage: 200 UG, 1X/DAY
  5. LEVOTHYROXINE SODIUM [Concomitant]
     Indication: THYROID DISORDER
     Dosage: 0.1 MG, 1X/DAY

REACTIONS (3)
  - RASH PRURITIC [None]
  - SWELLING FACE [None]
  - PARAESTHESIA [None]
